FAERS Safety Report 16782937 (Version 1)
Quarter: 2019Q3

REPORT INFORMATION
  Report Type: Spontaneous
  Country: US (occurrence: US)
  Receive Date: 20190906
  Receipt Date: 20190906
  Transmission Date: 20191005
  Serious: No
  Sender: FDA-Public Use
  Company Number: US-TEVA-2019-US-1103810

PATIENT
  Age: 32 Year
  Sex: Female

DRUGS (1)
  1. EPINEPHRINE INJECTION AUTO-INJECTOR TRAINER [Suspect]
     Active Substance: EPINEPHRINE
     Indication: HEREDITARY ANGIOEDEMA
     Dosage: DOSE STRENGTH:  0.3 MG/0.3 ML AUTO-INJECTOR TRAINER
     Route: 065

REACTIONS (4)
  - Product use issue [Unknown]
  - Product substitution issue [Unknown]
  - Contusion [Unknown]
  - Pain [Unknown]
